FAERS Safety Report 9123005 (Version 5)
Quarter: 2013Q3

REPORT INFORMATION
  Report Type: Report from Study
  Country: HU (occurrence: HU)
  Receive Date: 20130227
  Receipt Date: 20130718
  Transmission Date: 20140515
  Serious: Yes (Death)
  Sender: FDA-Public Use
  Company Number: HU-ROCHE-1188232

PATIENT
  Age: 57 Year
  Sex: Male
  Weight: 63.3 kg

DRUGS (10)
  1. TRASTUZUMAB EMTANSINE [Suspect]
     Indication: GASTRIC CANCER
     Dosage: LAST DOSE PRIOR TO SAE: 29/JAN/2013 (DOSE: 236.88 MG)
     Route: 042
     Dates: start: 20130108
  2. AKTIFERRIN [Concomitant]
     Indication: ANAEMIA PROPHYLAXIS
     Route: 065
     Dates: start: 20110221
  3. ALGOPYRIN [Concomitant]
     Indication: HEADACHE
     Route: 065
     Dates: start: 201211
  4. CERUCAL [Concomitant]
     Indication: NAUSEA
     Route: 065
     Dates: start: 201207
  5. CORYOL [Concomitant]
     Indication: HYPERTENSION
     Route: 065
     Dates: start: 20111004
  6. COVERCARD [Concomitant]
     Indication: HYPERTENSION
     Route: 065
     Dates: start: 200910
  7. NITRODERM [Concomitant]
     Indication: ANGINA PECTORIS
     Route: 065
     Dates: start: 20110412
  8. PERINDOPRIL [Concomitant]
     Indication: HYPERTENSION
     Route: 065
     Dates: start: 20120104
  9. SUPRASTIN [Concomitant]
     Indication: HYPERSENSITIVITY
     Route: 065
     Dates: start: 20130108, end: 20130108
  10. SOLU-MEDROL [Concomitant]
     Indication: HYPERSENSITIVITY
     Route: 065
     Dates: start: 20130108, end: 20130108

REACTIONS (1)
  - Cardiac failure [Fatal]
